FAERS Safety Report 5466849-1 (Version None)
Quarter: 2007Q3

REPORT INFORMATION
  Report Type: 
  Country: None (occurrence: None)
  Receive Date: 20070925
  Receipt Date: 20070924
  Transmission Date: 20080115
  Serious: Yes (Other)
  Sender: FDA-Public Use
  Company Number: NL-BRISTOL-MYERS SQUIBB COMPANY-13916721

PATIENT
  Age: 38 Year
  Sex: Female
  Weight: 85 kg

DRUGS (2)
  1. PACLITAXEL [Suspect]
     Indication: BREAST CANCER
     Dates: start: 20070416
  2. DARBEPOETIN ALFA [Suspect]
     Indication: ANAEMIA
     Dosage: 500 MCG/ML WITH LATENCY OF THREE WEEKS.
     Dates: start: 20070510

REACTIONS (3)
  - OEDEMA PERIPHERAL [None]
  - PAIN IN EXTREMITY [None]
  - RENAL IMPAIRMENT [None]
